FAERS Safety Report 7745928-X (Version None)
Quarter: 2011Q3

REPORT INFORMATION
  Report Type: 
  Country: None (occurrence: None)
  Receive Date: 20110913
  Receipt Date: 20110906
  Transmission Date: 20111222
  Serious: Yes (Hospitalization)
  Sender: FDA-Public Use
  Company Number: US-PFIZER INC-2011208762

PATIENT
  Sex: Female

DRUGS (8)
  1. CADUET [Concomitant]
     Dosage: 5/10 MG,  DAILY
  2. DORZOLAMIDE HYDROCHLORIDE AND TIMOLOL MALEATE [Concomitant]
     Dosage: 1 GTT, 2X/DAY
  3. OMEPRAZOLE [Concomitant]
     Indication: GASTROOESOPHAGEAL REFLUX DISEASE
     Dosage: 20 MG, DAILY
  4. PANTOPRAZOLE [Concomitant]
     Dosage: 40 MG, DAILY
  5. ISOSORBIDE MONONITRATE [Concomitant]
     Dosage: 60 MG, DAILY
  6. TOVIAZ [Concomitant]
     Dosage: 8 MG, DAILY
  7. CELEBREX [Suspect]
     Dosage: 200 MG, DAILY
     Route: 048
     Dates: start: 20091119
  8. ATENOLOL [Concomitant]
     Dosage: 25 MG, DAILY

REACTIONS (1)
  - GASTROINTESTINAL HAEMORRHAGE [None]
